FAERS Safety Report 5892674-3 (Version None)
Quarter: 2008Q3

REPORT INFORMATION
  Report Type: 
  Country: None (occurrence: None)
  Receive Date: 20080923
  Receipt Date: 20080917
  Transmission Date: 20090109
  Serious: Yes (Death, Other)
  Sender: FDA-Public Use
  Company Number: PHHY2008JP21826

PATIENT
  Age: 65 Year
  Sex: Male

DRUGS (6)
  1. CYCLOSPORINE [Suspect]
     Indication: RHEUMATOID ARTHRITIS
     Dosage: 3 MG/KG
     Route: 048
     Dates: start: 20040525
  2. PREDNISOLONE [Concomitant]
     Indication: RHEUMATOID ARTHRITIS
     Dosage: 10 MG
     Route: 048
  3. PREDNISOLONE [Concomitant]
     Dosage: 60 MG
     Route: 048
  4. PREDNISOLONE [Concomitant]
     Dosage: 40 MG
     Route: 048
  5. PREDNISOLONE [Concomitant]
     Dosage: 10 MG
     Route: 048
  6. IMMUNE GLOBULIN INTRAVENOUS (HUMAN) [Concomitant]
     Indication: RHEUMATOID ARTHRITIS
     Dosage: 400 MG/KG
     Dates: start: 20040115, end: 20040119

REACTIONS (3)
  - DIFFUSE LARGE B-CELL LYMPHOMA [None]
  - RENAL FAILURE ACUTE [None]
  - RHEUMATOID ARTHRITIS [None]
